FAERS Safety Report 8924356 (Version 1)
Quarter: 2012Q4

REPORT INFORMATION
  Report Type: 
  Country: US (occurrence: US)
  Receive Date: 20121126
  Receipt Date: 20121126
  Transmission Date: 20130627
  Serious: No
  Sender: FDA-Public Use
  Company Number: US-MYLANLABS-2011S1022147

PATIENT
  Age: 56 Year
  Sex: Female
  Weight: 68.04 kg

DRUGS (3)
  1. IMIPRAMINE HYDROCHLORIDE [Suspect]
     Indication: ANXIETY
     Route: 048
     Dates: start: 2008
  2. IMIPRAMINE HYDROCHLORIDE [Suspect]
     Indication: DEPRESSION
     Route: 048
     Dates: start: 2008
  3. CLONAZEPAM [Suspect]
     Indication: TEMPOROMANDIBULAR JOINT SYNDROME
     Route: 048
     Dates: end: 201105

REACTIONS (5)
  - Hyperhidrosis [Not Recovered/Not Resolved]
  - Dry mouth [Not Recovered/Not Resolved]
  - Swollen tongue [Recovering/Resolving]
  - Hypoaesthesia [Recovering/Resolving]
  - Off label use [Recovered/Resolved]
